FAERS Safety Report 23522533 (Version 1)
Quarter: 2024Q1

REPORT INFORMATION
  Report Type: Spontaneous
  Country: US (occurrence: US)
  Receive Date: 20240214
  Receipt Date: 20240214
  Transmission Date: 20240410
  Serious: Yes (Other)
  Sender: FDA-Public Use
  Company Number: US-PFIZER INC-202400039848

PATIENT
  Age: 49 Year
  Sex: Female

DRUGS (2)
  1. XELJANZ XR [Suspect]
     Active Substance: TOFACITINIB CITRATE
     Dosage: 11 MG
     Route: 048
     Dates: end: 202401
  2. MAGNESIUM [Concomitant]
     Active Substance: MAGNESIUM
     Dosage: IN THE EVENINGS

REACTIONS (4)
  - Gastroenteritis salmonella [Recovered/Resolved]
  - Rash [Recovered/Resolved]
  - Immune system disorder [Recovered/Resolved]
  - Pruritus [Recovered/Resolved]

NARRATIVE: CASE EVENT DATE: 20231101
